FAERS Safety Report 4929069-2 (Version None)
Quarter: 2006Q1

REPORT INFORMATION
  Report Type: 
  Country: None (occurrence: None)
  Receive Date: 20060301
  Receipt Date: 20050930
  Transmission Date: 20060701
  Serious: Yes (Death, Other)
  Sender: FDA-Public Use
  Company Number: US-MERCK-0510USA01298

PATIENT
  Age: 68 Year
  Sex: Female

DRUGS (1)
  1. VIOXX [Suspect]
     Indication: ARTHRITIS
     Route: 048
     Dates: start: 20000405, end: 20030901

REACTIONS (2)
  - CEREBROVASCULAR ACCIDENT [None]
  - DEATH [None]
